FAERS Safety Report 10169419 (Version 1)
Quarter: 2014Q2

REPORT INFORMATION
  Report Type: Spontaneous
  Country: US (occurrence: US)
  Receive Date: 20140513
  Receipt Date: 20140513
  Transmission Date: 20141212
  Serious: No
  Sender: FDA-Public Use
  Company Number: US-PFIZER INC-2014129458

PATIENT
  Sex: Female
  Weight: 79.37 kg

DRUGS (1)
  1. LIPITOR [Suspect]
     Indication: GASTROINTESTINAL DISORDER
     Dosage: UNK, 4X/DAY

REACTIONS (2)
  - Malaise [Unknown]
  - Weight increased [Unknown]
